FAERS Safety Report 8960805 (Version 3)
Quarter: 2013Q3

REPORT INFORMATION
  Report Type: Report from Study
  Country: MX (occurrence: MX)
  Receive Date: 20121213
  Receipt Date: 20130902
  Transmission Date: 20140515
  Serious: Yes (Other)
  Sender: FDA-Public Use
  Company Number: PHHY2012MX114000

PATIENT
  Age: 54 Year
  Sex: Female

DRUGS (5)
  1. SANDIMMUN NEORAL [Suspect]
     Indication: PSORIASIS
     Dosage: 25 MG, BID
     Route: 048
     Dates: start: 201210, end: 20121203
  2. SANDIMMUN NEORAL [Suspect]
     Dosage: 50 MG, BID
     Route: 048
     Dates: start: 20121203, end: 20121214
  3. SANDIMMUN NEORAL [Suspect]
     Dosage: 100 MG, BID
     Route: 048
     Dates: start: 20121214
  4. SANDIMMUN NEORAL [Suspect]
     Dosage: 50 MG, UNK
     Route: 048
  5. SANDIMMUN NEORAL [Suspect]
     Dosage: 25 MG, UNK
     Route: 048

REACTIONS (6)
  - Skin lesion [Recovering/Resolving]
  - Lymphadenopathy [Recovering/Resolving]
  - Skin exfoliation [Recovering/Resolving]
  - Erythema [Recovering/Resolving]
  - Skin ulcer [Not Recovered/Not Resolved]
  - Skin irritation [Recovering/Resolving]
